FAERS Safety Report 5822461-3 (Version None)
Quarter: 2008Q3

REPORT INFORMATION
  Report Type: 
  Country: None (occurrence: None)
  Receive Date: 20080725
  Receipt Date: 20080220
  Transmission Date: 20090109
  Serious: No
  Sender: FDA-Public Use
  Company Number: US-AMGEN-KDL259115

PATIENT
  Sex: Female
  Weight: 44.5 kg

DRUGS (6)
  1. PROCRIT [Suspect]
     Indication: RENAL FAILURE CHRONIC
     Dates: start: 20060616
  2. SYNTHROID [Concomitant]
  3. LIPITOR [Concomitant]
  4. PEPCID [Concomitant]
  5. AMBIEN [Concomitant]
  6. UNSPECIFIED OPHTHALMIC PREPARATION [Concomitant]

REACTIONS (4)
  - BLOOD FOLATE INCREASED [None]
  - GASTROINTESTINAL HAEMORRHAGE [None]
  - THERAPEUTIC RESPONSE DECREASED [None]
  - VITAMIN B12 INCREASED [None]
